APPROVED DRUG PRODUCT: EPIRUBICIN HYDROCHLORIDE
Active Ingredient: EPIRUBICIN HYDROCHLORIDE
Strength: 50MG/VIAL
Dosage Form/Route: POWDER;INTRAVENOUS
Application: N050807 | Product #001
Applicant: HOSPIRA INC
Approved: Sep 15, 2006 | RLD: No | RS: No | Type: DISCN